FAERS Safety Report 16746594 (Version 4)
Quarter: 2020Q2

REPORT INFORMATION
  Report Type: Report from Study
  Country: GB (occurrence: GB)
  Receive Date: 20190827
  Receipt Date: 20200416
  Transmission Date: 20200713
  Serious: Yes (Death, Hospitalization)
  Sender: FDA-Public Use
  Company Number: GB-MYLANLABS-2019M1079721

PATIENT
  Sex: Female

DRUGS (57)
  1. GABAPENTIN. [Concomitant]
     Active Substance: GABAPENTIN
     Indication: MUSCULOSKELETAL CHEST PAIN
     Dosage: 300MG MORNING AND 600MG EVENING
     Route: 048
     Dates: start: 20181229
  2. GABAPENTIN. [Concomitant]
     Active Substance: GABAPENTIN
     Indication: BONE PAIN
     Dosage: 600 MILLIGRAM, QD
     Route: 048
     Dates: start: 20181220
  3. PARACETAMOL [Concomitant]
     Active Substance: ACETAMINOPHEN
     Indication: BONE PAIN
     Dosage: 4 GRAM, QD(1 GRAM,QID)
     Route: 048
  4. DIAMORPHINE [Concomitant]
     Active Substance: DIAMORPHINE
     Dosage: 40 MILLIGRAM
     Route: 058
     Dates: start: 20190515, end: 20190516
  5. DIAMORPHINE [Concomitant]
     Active Substance: DIAMORPHINE
     Dosage: 350 MILLIGRAM
     Route: 058
     Dates: start: 20190516, end: 20190517
  6. DEXAMETHASONE. [Concomitant]
     Active Substance: DEXAMETHASONE
     Dosage: 3.3 MILLIGRAM, QD
     Route: 048
     Dates: start: 20190514, end: 20190515
  7. SANDO K                            /00031402/ [Concomitant]
     Indication: HYPOKALAEMIA
     Dosage: 4 DOSAGE FORM, QD
     Route: 048
     Dates: start: 20190513, end: 20190513
  8. ZOMORPH [Concomitant]
     Active Substance: MORPHINE SULFATE
     Indication: MUSCULOSKELETAL CHEST PAIN
     Dosage: 280 MILLIGRAM, QD
     Route: 048
     Dates: start: 20171002, end: 20190116
  9. CALCICHEW D3 FORTE [Concomitant]
     Active Substance: CALCIUM\CHOLECALCIFEROL
     Indication: METASTASIS
     Dosage: DOSE: 1 TABLET
     Route: 048
     Dates: start: 20171007
  10. MIDAZOLAM. [Concomitant]
     Active Substance: MIDAZOLAM
     Dosage: 30 MILLIGRAM
     Route: 058
     Dates: start: 20190515, end: 20190516
  11. LETROZOLE. [Suspect]
     Active Substance: LETROZOLE
     Indication: BREAST CANCER
     Dosage: 2.5 MILLIGRAM, QD
     Route: 048
     Dates: start: 201709
  12. FLU VACCINE VII [Concomitant]
     Active Substance: INFLUENZA VIRUS VACCINE
     Indication: ANTIVIRAL PROPHYLAXIS
     Dosage: UNK
     Route: 058
     Dates: start: 20171211, end: 20171211
  13. DENOSUMAB [Concomitant]
     Active Substance: DENOSUMAB
     Dosage: 120 MILLIGRAM, MONTHLY
     Route: 058
     Dates: start: 20171007, end: 20181120
  14. LAXIDO [Concomitant]
     Active Substance: POLYETHYLENE GLYCOL 3350\POTASSIUM CHLORIDE\SODIUM BICARBONATE\SODIUM CHLORIDE
     Dosage: DOSE: 1 SACHET
     Route: 048
  15. DIAMORPHINE [Concomitant]
     Active Substance: DIAMORPHINE
     Indication: BONE PAIN
     Dosage: 30 MILLIGRAM
     Route: 058
     Dates: start: 20190514, end: 20190515
  16. GLYCOPYRONIUM [Concomitant]
     Active Substance: GLYCOPYRRONIUM
     Dosage: 1.2 MILLIGRAM
     Route: 058
     Dates: start: 20190515, end: 20190517
  17. DIFFLAM [Concomitant]
     Active Substance: BENZYDAMINE HYDROCHLORIDE
     Dosage: UNK UNK, QD
     Route: 061
     Dates: start: 20190503, end: 20190513
  18. DEXAMETHASONE. [Concomitant]
     Active Substance: DEXAMETHASONE
     Dosage: 6 MILLIGRAM, QD
     Route: 048
     Dates: start: 20010502, end: 20190509
  19. NYSTATIN. [Concomitant]
     Active Substance: NYSTATIN
     Indication: ORAL CANDIDIASIS
     Dosage: 4 MILLILITER, QD
     Route: 048
     Dates: start: 20190508, end: 20190512
  20. TRASTUZUMAB. [Suspect]
     Active Substance: TRASTUZUMAB
     Dosage: 350 MILLIGRAM, Q3W
     Route: 042
     Dates: start: 20190115
  21. CITALOPRAM [Concomitant]
     Active Substance: CITALOPRAM HYDROBROMIDE
     Dosage: 20 MILLIGRAM, QD
     Route: 048
  22. FLUCLOXACILLIN [Concomitant]
     Active Substance: FLUCLOXACILLIN
     Indication: SKIN INFECTION
     Dosage: 2000 MILLIGRAM, QD (500 MG, QID)
     Route: 048
     Dates: start: 20180803, end: 20180810
  23. NITROFURANTOIN. [Concomitant]
     Active Substance: NITROFURANTOIN
     Indication: URINARY TRACT INFECTION
     Route: 048
     Dates: start: 20190124, end: 20190127
  24. LEVOMEPROMAZINE [Concomitant]
     Active Substance: LEVOMEPROMAZINE
     Indication: RESTLESSNESS
     Dosage: 50 MILLIGRAM
     Route: 058
     Dates: start: 20190516, end: 20190517
  25. GLYCOPYRONIUM [Concomitant]
     Active Substance: GLYCOPYRRONIUM
     Dosage: 200 MICROGRAM
     Route: 058
     Dates: start: 20190515, end: 20190516
  26. DIFFLAM [Concomitant]
     Active Substance: BENZYDAMINE HYDROCHLORIDE
     Dosage: 3 DOSAGE FORM, QD (1 DF, TID)
     Route: 061
     Dates: start: 20190513, end: 20190513
  27. TRASTUZUMAB. [Suspect]
     Active Substance: TRASTUZUMAB
     Indication: BREAST CANCER
     Dosage: 600 MILLIGRAM, Q3W
     Route: 058
     Dates: start: 20170918, end: 20181205
  28. ORAMORPH [Concomitant]
     Active Substance: MORPHINE SULFATE
     Indication: BONE PAIN
     Dosage: 20 MILLIGRAM, PRN
     Route: 048
     Dates: end: 20171002
  29. AMOXICILLIN. [Concomitant]
     Active Substance: AMOXICILLIN
     Indication: SINUSITIS
     Route: 048
     Dates: start: 20180911, end: 20180918
  30. IBUPROFEN. [Concomitant]
     Active Substance: IBUPROFEN
     Dosage: 1200 MILLIGRAM, QD
     Route: 048
  31. DIAMORPHINE [Concomitant]
     Active Substance: DIAMORPHINE
     Dosage: 180 MILLIGRAM
     Route: 058
     Dates: start: 20190514, end: 20190515
  32. DIAMORPHINE [Concomitant]
     Active Substance: DIAMORPHINE
     Dosage: 2.5 MILLIGRAM
     Route: 058
     Dates: start: 20190514, end: 20190514
  33. MIDAZOLAM. [Concomitant]
     Active Substance: MIDAZOLAM
     Dosage: 10 MILLIGRAM
     Route: 058
     Dates: start: 20190514, end: 20190515
  34. LORAZEPAM. [Concomitant]
     Active Substance: LORAZEPAM
     Dosage: 4 MILLIGRAM, QD (1 MILLIGAM, QID)
     Route: 048
     Dates: start: 20190514, end: 20190514
  35. INHIXA [Concomitant]
     Active Substance: ENOXAPARIN SODIUM
     Dosage: 40 MILLIGRAM, QD
     Route: 058
     Dates: start: 20190501, end: 20190513
  36. ORAMORPH [Concomitant]
     Active Substance: MORPHINE SULFATE
     Dosage: 80 MILLIGRAM
     Route: 048
     Dates: start: 20190506, end: 20190513
  37. ZOMORPH [Concomitant]
     Active Substance: MORPHINE SULFATE
     Dosage: 480 MILLIGRAM, QD
     Route: 048
     Dates: start: 20190116
  38. CASSIA ACUTIFOLIA [Concomitant]
     Dosage: 2 DOSAGE FORM, QD
     Route: 048
  39. MORPHINE [Concomitant]
     Active Substance: MORPHINE
     Indication: BONE PAIN
     Dosage: 10 MILLIGRAM, PRN
     Route: 042
     Dates: start: 20190324, end: 20190324
  40. DEXAMETHASONE. [Concomitant]
     Active Substance: DEXAMETHASONE
     Dosage: 5 MILLIGRAM, QD
     Route: 048
     Dates: start: 20190510, end: 20190513
  41. GABAPENTIN. [Concomitant]
     Active Substance: GABAPENTIN
     Dosage: 1800 MILLIGRAM, QD
     Route: 048
     Dates: start: 20190324, end: 20190513
  42. SALBUTAMOL [Concomitant]
     Active Substance: ALBUTEROL
     Dosage: 100 MICROGRAM, PRN
     Route: 055
  43. DIAMORPHINE [Concomitant]
     Active Substance: DIAMORPHINE
     Dosage: 1.25 MILLIGRAM, PRN
     Route: 042
     Dates: start: 20190324, end: 20190324
  44. DIAMORPHINE [Concomitant]
     Active Substance: DIAMORPHINE
     Dosage: 270 MILLIGRAM
     Route: 058
     Dates: start: 20190515, end: 20190516
  45. MIDAZOLAM. [Concomitant]
     Active Substance: MIDAZOLAM
     Indication: BONE PAIN
     Dosage: 5 MILLIGRAM, PRN
     Route: 058
     Dates: start: 20190515, end: 20190515
  46. MIDAZOLAM. [Concomitant]
     Active Substance: MIDAZOLAM
     Dosage: 7.5 MILLIGRAM, PRN
     Route: 058
     Dates: start: 20190515, end: 20190516
  47. PARACETAMOL [Concomitant]
     Active Substance: ACETAMINOPHEN
     Indication: BONE PAIN
     Dosage: 4 GRAM, QD(1 GRAM,QID)
     Route: 042
     Dates: start: 20190324, end: 20190515
  48. DEXAMETHASONE. [Concomitant]
     Active Substance: DEXAMETHASONE
     Dosage: 2 MILLIGRAM, QD
     Route: 048
     Dates: start: 20190501, end: 20190501
  49. ZOMORPH [Concomitant]
     Active Substance: MORPHINE SULFATE
     Dosage: 200 UNK
     Route: 048
  50. LANSOPRAZOLE. [Concomitant]
     Active Substance: LANSOPRAZOLE
     Indication: PROPHYLAXIS
     Dosage: 30 MILLIGRAM, QD
     Route: 048
  51. LEVOMEPROMAZINE [Concomitant]
     Active Substance: LEVOMEPROMAZINE
     Dosage: 18.75 MILLIGRAM
     Route: 058
     Dates: start: 20190515, end: 20190515
  52. LEVOMEPROMAZINE [Concomitant]
     Active Substance: LEVOMEPROMAZINE
     Dosage: 25 MILLIGRAM
     Route: 058
     Dates: start: 20190515, end: 20190516
  53. SENNA                              /00142201/ [Concomitant]
     Active Substance: SENNA LEAF
     Dosage: 2 DOSAGE FORM, QD
     Route: 048
  54. MIDAZOLAM. [Concomitant]
     Active Substance: MIDAZOLAM
     Dosage: 50 MILLIGRAM, PRN
     Route: 058
     Dates: start: 20190516, end: 20190517
  55. MIDAZOLAM. [Concomitant]
     Active Substance: MIDAZOLAM
     Dosage: 10 MILLIGRAM, PRN
     Route: 058
     Dates: start: 20190515, end: 20190515
  56. MIDAZOLAM. [Concomitant]
     Active Substance: MIDAZOLAM
     Dosage: 2.5 MILLIGRAM, PRN
     Route: 058
     Dates: start: 20190514, end: 20190514
  57. HALOPERIDOL. [Concomitant]
     Active Substance: HALOPERIDOL
     Dosage: 3 MILLIGRAM, QD
     Route: 058
     Dates: start: 20190514, end: 20190514

REACTIONS (7)
  - Pneumonia [Fatal]
  - Pain in extremity [Not Recovered/Not Resolved]
  - Skin infection [Not Recovered/Not Resolved]
  - Musculoskeletal pain [Recovered/Resolved]
  - Sinusitis [Recovered/Resolved]
  - Neck pain [Recovered/Resolved]
  - Hypoaesthesia [Not Recovered/Not Resolved]

NARRATIVE: CASE EVENT DATE: 20180305
